FAERS Safety Report 7056168-4 (Version None)
Quarter: 2010Q4

REPORT INFORMATION
  Report Type: 
  Country: None (occurrence: None)
  Receive Date: 20101018
  Receipt Date: 20100427
  Transmission Date: 20110411
  Serious: No
  Sender: FDA-Public Use
  Company Number: 2010-00868

PATIENT
  Sex: Female

DRUGS (1)
  1. ZICAM COLD REMEDY CHEWCAPS [Suspect]
     Dosage: 1 DAY
     Dates: start: 20100313, end: 20100314

REACTIONS (2)
  - AGEUSIA [None]
  - TONGUE PARALYSIS [None]
